FAERS Safety Report 5183175-9 (Version None)
Quarter: 2006Q4

REPORT INFORMATION
  Report Type: 
  Country: None (occurrence: None)
  Receive Date: 20061220
  Receipt Date: 20051228
  Transmission Date: 20070319
  Serious: No
  Sender: FDA-Public Use
  Company Number: US-GLAXOSMITHKLINE-A0587194A

PATIENT
  Age: 25 Year
  Sex: Female

DRUGS (1)
  1. EQUATE NTS 21MG [Suspect]
     Indication: SMOKING CESSATION THERAPY
     Dates: start: 20051226, end: 20051228

REACTIONS (11)
  - ABDOMINAL PAIN LOWER [None]
  - APPLICATION SITE ERYTHEMA [None]
  - APPLICATION SITE IRRITATION [None]
  - APPLICATION SITE PRURITUS [None]
  - DIZZINESS [None]
  - DYSPNOEA [None]
  - FEELING ABNORMAL [None]
  - HOT FLUSH [None]
  - HYPOAESTHESIA [None]
  - NAUSEA [None]
  - NICOTINE DEPENDENCE [None]
